FAERS Safety Report 4658322-5 (Version None)
Quarter: 2005Q2

REPORT INFORMATION
  Report Type: 
  Country: None (occurrence: None)
  Receive Date: 20050509
  Receipt Date: 20050503
  Transmission Date: 20051028
  Serious: Yes (Hospitalization)
  Sender: FDA-Public Use
  Company Number: GBWYE637103MAY05

PATIENT
  Age: 61 Year
  Sex: Female

DRUGS (7)
  1. EFFEXOR [Suspect]
     Indication: DEPRESSION
     Dosage: 150 MG 2X PER 1 DAY ORAL
     Route: 048
     Dates: end: 20050317
  2. LEVOTHYROXINE SODIUM [Concomitant]
  3. AMISULPRIDE (AMISULPRIDE) [Concomitant]
  4. FERROUS SULPHATE (FERROUS SULFATE) [Concomitant]
  5. LANSOPRAZOLE [Concomitant]
  6. SERETIDE (SALMETEROL/FLUTICASONE) [Concomitant]
  7. IPRATROPIUM BROMIDE [Concomitant]

REACTIONS (2)
  - BLOOD OSMOLARITY DECREASED [None]
  - HYPONATRAEMIA [None]
